FAERS Safety Report 8225013-3 (Version None)
Quarter: 2012Q1

REPORT INFORMATION
  Report Type: 
  Country: None (occurrence: None)
  Receive Date: 20120321
  Receipt Date: 20120312
  Transmission Date: 20120608
  Serious: Yes (Other)
  Sender: FDA-Public Use
  Company Number: US-ROCHE-727177

PATIENT
  Sex: Male
  Weight: 54.4 kg

DRUGS (1)
  1. ACCUTANE [Suspect]
     Indication: ACNE
     Route: 065
     Dates: start: 20021115, end: 20030501

REACTIONS (8)
  - ALOPECIA [None]
  - COLITIS ULCERATIVE [None]
  - GASTROINTESTINAL INJURY [None]
  - PANIC DISORDER [None]
  - INFLAMMATORY BOWEL DISEASE [None]
  - MUCOSAL DRYNESS [None]
  - CROHN'S DISEASE [None]
  - EMOTIONAL DISTRESS [None]
